FAERS Safety Report 8226174-2 (Version None)
Quarter: 2012Q1

REPORT INFORMATION
  Report Type: 
  Country: None (occurrence: None)
  Receive Date: 20120307
  Receipt Date: 20091022
  Transmission Date: 20120608
  Serious: No
  Sender: FDA-Public Use
  Company Number: PHEH2009US14763

PATIENT

DRUGS (3)
  1. LIPITOR [Concomitant]
  2. LOPID [Concomitant]
  3. AFINITOR [Suspect]
     Dosage: 10 MG

REACTIONS (2)
  - BLOOD TRIGLYCERIDES INCREASED [None]
  - GLOMERULAR FILTRATION RATE DECREASED [None]
